FAERS Safety Report 7280254-7 (Version None)
Quarter: 2011Q1

REPORT INFORMATION
  Report Type: 
  Country: None (occurrence: None)
  Receive Date: 20110208
  Receipt Date: 20110202
  Transmission Date: 20110831
  Serious: Yes (Hospitalization)
  Sender: FDA-Public Use
  Company Number: IE-AMGEN-IRLSP2011006545

PATIENT
  Sex: Male

DRUGS (8)
  1. CARDICOR [Concomitant]
  2. ANTINEOPLASTIC AGENTS [Concomitant]
  3. LASIX [Concomitant]
  4. NEULASTA [Suspect]
     Indication: CHEMOTHERAPY
     Dosage: 6 MG, Q2WK
     Route: 058
     Dates: start: 20100401
  5. PROTIUM [Concomitant]
  6. GLUCOPHAGE [Concomitant]
  7. LIPITOR [Concomitant]
  8. COVERSYL                           /00790701/ [Concomitant]

REACTIONS (1)
  - PAIN IN EXTREMITY [None]
